FAERS Safety Report 8120646-7 (Version None)
Quarter: 2012Q1

REPORT INFORMATION
  Report Type: 
  Country: None (occurrence: None)
  Receive Date: 20120207
  Receipt Date: 20120130
  Transmission Date: 20120608
  Serious: Yes (Other)
  Sender: FDA-Public Use
  Company Number: GB-ASTRAZENECA-2012SE06359

PATIENT
  Age: 15 Year
  Sex: Female
  Weight: 52.4 kg

DRUGS (20)
  1. CREON [Concomitant]
     Indication: CYSTIC FIBROSIS
     Route: 048
  2. MOVIPREP [Concomitant]
  3. VITAMIN K TAB [Concomitant]
     Indication: CYSTIC FIBROSIS
     Route: 048
  4. DEOXYRIBONUCLEASE [Concomitant]
     Indication: CYSTIC FIBROSIS
  5. MENADIOL [Concomitant]
  6. VITAMIN E [Concomitant]
     Indication: CYSTIC FIBROSIS
     Route: 048
  7. SENOKOT [Concomitant]
  8. VITAMIN B SUBSTANCES [Concomitant]
     Indication: CYSTIC FIBROSIS
     Route: 048
  9. ACETYLCYSTEINE [Concomitant]
     Dosage: AS NECESSARY
  10. TOBRAMYCIN [Suspect]
     Indication: CYSTIC FIBROSIS
     Route: 042
     Dates: start: 20111207, end: 20111227
  11. OMEPRAZOLE [Concomitant]
     Route: 048
  12. ALBUTEROL SULFATE AUTOHALER [Concomitant]
     Dosage: AS NECESSARY
     Route: 055
  13. ASCORBIC ACID [Concomitant]
     Indication: CYSTIC FIBROSIS
     Route: 048
  14. VITAMIN A [Concomitant]
     Indication: CYSTIC FIBROSIS
     Route: 048
  15. OSMOLITE [Concomitant]
  16. MEROPENEM [Suspect]
     Indication: CYSTIC FIBROSIS
     Route: 042
     Dates: start: 20111207, end: 20111227
  17. MULTI-VITAMIN [Concomitant]
  18. COLISTIN SULFATE [Concomitant]
     Indication: CYSTIC FIBROSIS
  19. PROCAL [Concomitant]
  20. URSODIOL [Concomitant]
     Indication: CYSTIC FIBROSIS
     Route: 048

REACTIONS (2)
  - DECREASED APPETITE [None]
  - AGEUSIA [None]
